FAERS Safety Report 14797608 (Version 2)
Quarter: 2019Q1

REPORT INFORMATION
  Report Type: Report from Study
  Country: None (occurrence: FI)
  Receive Date: 20180424
  Receipt Date: 20190326
  Transmission Date: 20190417
  Serious: Yes (Other)
  Sender: FDA-Public Use
  Company Number: FI-ABBVIE-18K-055-2331839-00

PATIENT
  Age: 64 Year
  Sex: Female

DRUGS (2)
  1. DUODOPA [Suspect]
     Active Substance: CARBIDOPA\LEVODOPA
     Indication: PARKINSON^S DISEASE
     Dosage: CD AT DAYTIME 6.5 ML AND AT NIGHT 4.8 ML. 24H TREATMENT.
     Route: 050
     Dates: start: 201705
  2. DUODOPA [Suspect]
     Active Substance: CARBIDOPA\LEVODOPA
     Dosage: 24 H TREATMENT; CD DURING DAY 6.2 ML AND DURING NIGHT 4.2
     Route: 050

REACTIONS (11)
  - Asthenia [Recovered/Resolved]
  - Somnolence [Recovered/Resolved]
  - Speech disorder [Recovered/Resolved]
  - Anxiety [Not Recovered/Not Resolved]
  - Dyspnoea [Not Recovered/Not Resolved]
  - Loss of consciousness [Recovered/Resolved]
  - Device breakage [Recovered/Resolved]
  - Insomnia [Not Recovered/Not Resolved]
  - Illusion [Not Recovered/Not Resolved]
  - Fatigue [Recovered/Resolved]
  - Device breakage [Unknown]

NARRATIVE: CASE EVENT DATE: 201803
